FAERS Safety Report 8759275 (Version 2)
Quarter: 2012Q4

REPORT INFORMATION
  Report Type: 
  Country: CH (occurrence: CH)
  Receive Date: 20120829
  Receipt Date: 20120907
  Transmission Date: 20130627
  Serious: Yes (Death)
  Sender: FDA-Public Use
  Company Number: CH-CELGENEUS-151-50794-12082570

PATIENT
  Sex: Female

DRUGS (6)
  1. VIDAZA [Suspect]
     Indication: ACUTE MYELOID LEUKEMIA
     Route: 065
     Dates: start: 20111212, end: 20111216
  2. VIDAZA [Suspect]
     Route: 065
     Dates: start: 20120509, end: 20120513
  3. PASPERTIN [Concomitant]
     Indication: DRUG USE FOR UNKNOWN INDICATION
     Route: 065
  4. CALPEROS D3 [Concomitant]
     Indication: DRUG USE FOR UNKNOWN INDICATION
     Route: 065
  5. LAXOBERON [Concomitant]
     Indication: DRUG USE FOR UNKNOWN INDICATION
     Route: 065
  6. TEMESTA [Concomitant]
     Indication: DRUG USE FOR UNKNOWN INDICATION
     Route: 065

REACTIONS (1)
  - Acute myeloid leukaemia [Fatal]
